FAERS Safety Report 8763372 (Version 3)
Quarter: 2014Q1

REPORT INFORMATION
  Report Type: Spontaneous
  Country: US (occurrence: US)
  Receive Date: 20120831
  Receipt Date: 20140214
  Transmission Date: 20141002
  Serious: No
  Sender: FDA-Public Use
  Company Number: US-009507513-1208USA010718

PATIENT
  Sex: Male
  Weight: 102.4 kg

DRUGS (5)
  1. VICTRELIS [Suspect]
     Indication: HEPATITIS C
     Dosage: 4 DF, TID
     Dates: start: 20120722
  2. REBETOL [Suspect]
  3. PEGASYS [Suspect]
  4. VITAMINS (UNSPECIFIED) [Concomitant]
  5. ASCORBIC ACID [Concomitant]

REACTIONS (1)
  - Injection site hypertrophy [Not Recovered/Not Resolved]
